FAERS Safety Report 20040515 (Version 1)
Quarter: 2021Q4

REPORT INFORMATION
  Report Type: Spontaneous
  Country: US (occurrence: None)
  Receive Date: 20211108
  Receipt Date: 20211108
  Transmission Date: 20220303
  Serious: No
  Sender: FDA-Public Use
  Company Number: None

PATIENT
  Age: 29 Year
  Sex: Female

DRUGS (1)
  1. GONAL-F RFF [Suspect]
     Active Substance: FOLLITROPIN
     Indication: Infertility female
     Dosage: FREQUENCY : DAILY;?
     Route: 058
     Dates: start: 20211008

REACTIONS (2)
  - Device defective [None]
  - Injection site haemorrhage [None]

NARRATIVE: CASE EVENT DATE: 20211029
